FAERS Safety Report 7782343-7 (Version None)
Quarter: 2011Q3

REPORT INFORMATION
  Report Type: 
  Country: None (occurrence: None)
  Receive Date: 20110927
  Receipt Date: 20110916
  Transmission Date: 20111222
  Serious: Yes (Death)
  Sender: FDA-Public Use
  Company Number: US-RB-032279-11

PATIENT
  Age: 4 Day

DRUGS (1)
  1. BUPRENORPHINE [Suspect]
     Indication: PRODUCT USED FOR UNKNOWN INDICATION
     Dosage: DOSING DETAILS UNKNOWN.
     Route: 065
     Dates: start: 20090101, end: 20090101

REACTIONS (1)
  - DEATH [None]
